FAERS Safety Report 8286193 (Version 3)
Quarter: 2013Q1

REPORT INFORMATION
  Report Type: Report from Study
  Country: DE (occurrence: DE)
  Receive Date: 20111213
  Receipt Date: 20130221
  Transmission Date: 20140127
  Serious: Yes (Hospitalization)
  Sender: FDA-Public Use
  Company Number: PHHO2011DE019958

PATIENT
  Age: 33 Year
  Sex: Female
  Weight: 68 kg

DRUGS (10)
  1. BLINDED AFINITOR [Suspect]
     Indication: TUBEROUS SCLEROSIS
     Dosage: CODE NOT BROKEN
     Route: 048
     Dates: start: 20090508, end: 20110719
  2. BLINDED NO TREATMENT RECEIVED [Suspect]
     Indication: TUBEROUS SCLEROSIS
     Dosage: CODE NOT BROKEN
     Route: 048
     Dates: start: 20090508, end: 20110719
  3. BLINDED PLACEBO [Suspect]
     Indication: TUBEROUS SCLEROSIS
     Dosage: CODE NOT BROKEN
     Route: 048
     Dates: start: 20090508, end: 20110719
  4. BLINDED AFINITOR [Suspect]
     Dosage: CODE NOT BROKEN
     Route: 048
     Dates: start: 20111205
  5. BLINDED NO TREATMENT RECEIVED [Suspect]
     Dosage: CODE NOT BROKEN
     Route: 048
     Dates: start: 20111205
  6. BLINDED PLACEBO [Suspect]
     Dosage: CODE NOT BROKEN
     Route: 048
     Dates: start: 20111205
  7. OXCARBAZEPINE [Concomitant]
     Indication: EPILEPSY
     Dosage: 600 MG, BID
     Route: 048
     Dates: end: 20110728
  8. CLOBETASOL [Concomitant]
     Indication: ECZEMA
  9. CLOTRIMAZOLE [Concomitant]
     Indication: ECZEMA
     Dosage: 1 G, ON DEMAND
     Route: 062
     Dates: start: 20110305
  10. LAMOTRIGINE [Concomitant]
     Indication: EPILEPSY
     Dosage: 400 MG, BID
     Route: 048
     Dates: end: 20110728

REACTIONS (8)
  - Haemorrhage [Recovered/Resolved with Sequelae]
  - Ileal perforation [Recovered/Resolved]
  - Peritonitis [Recovered/Resolved]
  - Sepsis [Recovered/Resolved]
  - Haemodynamic instability [Recovered/Resolved]
  - Cardiac failure congestive [Recovered/Resolved]
  - Abdominal compartment syndrome [Recovered/Resolved]
  - Abdominal adhesions [Recovered/Resolved]
